FAERS Safety Report 19441447 (Version 4)
Quarter: 2021Q4

REPORT INFORMATION
  Report Type: Spontaneous
  Country: GB (occurrence: GB)
  Receive Date: 20210621
  Receipt Date: 20211121
  Transmission Date: 20220304
  Serious: Yes (Hospitalization, Other)
  Sender: FDA-Public Use
  Company Number: GB-009507513-2106GBR005139

PATIENT
  Age: 45 Year
  Sex: Female
  Weight: 62 kg

DRUGS (7)
  1. PEMBROLIZUMAB [Suspect]
     Active Substance: PEMBROLIZUMAB
     Indication: Malignant melanoma
     Dosage: 200 MILLIGRAM, Q3W
     Route: 042
     Dates: start: 20210409, end: 20210409
  2. PEMBROLIZUMAB [Suspect]
     Active Substance: PEMBROLIZUMAB
     Dosage: 200 MILLIGRAM, Q3W
     Route: 042
     Dates: start: 20210430, end: 20210430
  3. PEMBROLIZUMAB [Suspect]
     Active Substance: PEMBROLIZUMAB
     Dosage: 200 MILLIGRAM, Q3W
     Route: 042
     Dates: start: 20210521, end: 20210521
  4. PEMBROLIZUMAB [Suspect]
     Active Substance: PEMBROLIZUMAB
     Dosage: 200 MILLIGRAM, Q3W
     Route: 042
     Dates: start: 20210226, end: 20210226
  5. PEMBROLIZUMAB [Suspect]
     Active Substance: PEMBROLIZUMAB
     Dosage: 200 MILLIGRAM, Q3W
     Route: 042
     Dates: start: 20210318, end: 20210318
  6. VITAMIN D NOS [Concomitant]
     Active Substance: VITAMIN D NOS
  7. FISH OIL [Concomitant]
     Active Substance: FISH OIL

REACTIONS (11)
  - Rheumatoid arthritis [Recovered/Resolved with Sequelae]
  - Immune-mediated enterocolitis [Recovered/Resolved]
  - Uveitis [Not Recovered/Not Resolved]
  - Hypoaesthesia [Unknown]
  - Cortisol increased [Unknown]
  - Dry eye [Unknown]
  - Paraesthesia [Unknown]
  - Paraesthesia [Unknown]
  - Amylase increased [Unknown]
  - Fatigue [Unknown]
  - Inappropriate schedule of product administration [Unknown]

NARRATIVE: CASE EVENT DATE: 20210318
